FAERS Safety Report 10660541 (Version 3)
Quarter: 2015Q1

REPORT INFORMATION
  Report Type: Spontaneous
  Country: US (occurrence: US)
  Receive Date: 20141217
  Receipt Date: 20150120
  Transmission Date: 20150720
  Serious: Yes (Death, Other)
  Sender: FDA-Public Use
  Company Number: US-GLAXOSMITHKLINE-A1087594A

PATIENT
  Age: 75 Year
  Sex: Male

DRUGS (1)
  1. VOTRIENT [Suspect]
     Active Substance: PAZOPANIB HYDROCHLORIDE
     Indication: MALIGNANT NEOPLASM OF RENAL PELVIS
     Dosage: 200 MG TABLETS X 2 = 400 MG TOTAL DOSE
     Route: 048
     Dates: start: 20140804

REACTIONS (4)
  - Death [Fatal]
  - Cachexia [Unknown]
  - Hospice care [Unknown]
  - Fatigue [Unknown]

NARRATIVE: CASE EVENT DATE: 20140819
